FAERS Safety Report 11319932 (Version 1)
Quarter: 2015Q3

REPORT INFORMATION
  Report Type: Spontaneous
  Country: US (occurrence: None)
  Receive Date: 20150728
  Receipt Date: 20150728
  Transmission Date: 20151125
  Serious: No
  Sender: FDA-Public Use
  Company Number: None

PATIENT
  Age: 30 Year
  Sex: Female
  Weight: 72.58 kg

DRUGS (3)
  1. CALCIUM [Concomitant]
     Active Substance: CALCIUM
  2. PRENATAL VITAMINS [Concomitant]
     Active Substance: VITAMINS
  3. SKYLA [Suspect]
     Active Substance: LEVONORGESTREL
     Indication: CONTRACEPTION

REACTIONS (8)
  - Depressed mood [None]
  - Vaginal haemorrhage [None]
  - Blood pressure increased [None]
  - Tremor [None]
  - Emotional disorder [None]
  - Depression [None]
  - Self-injurious ideation [None]
  - Anxiety [None]

NARRATIVE: CASE EVENT DATE: 20150726
